FAERS Safety Report 4744111-X (Version None)
Quarter: 2005Q3

REPORT INFORMATION
  Report Type: 
  Country: None (occurrence: None)
  Receive Date: 20050812
  Receipt Date: 20050805
  Transmission Date: 20060218
  Serious: Yes (Hospitalization, Other)
  Sender: FDA-Public Use
  Company Number: CA-JNJFOC-20050700777

PATIENT
  Age: 73 Year
  Sex: Male

DRUGS (3)
  1. DURAGESIC-100 [Suspect]
     Route: 062
     Dates: start: 20050101
  2. DURAGESIC-100 [Suspect]
     Route: 062
     Dates: start: 20050101
  3. OXYCONTIN [Concomitant]
     Indication: PAIN

REACTIONS (5)
  - BLADDER PAIN [None]
  - CONSTIPATION [None]
  - DRUG INEFFECTIVE [None]
  - PENILE PAIN [None]
  - SUICIDAL IDEATION [None]
